FAERS Safety Report 6674824-4 (Version None)
Quarter: 2010Q2

REPORT INFORMATION
  Report Type: 
  Country: None (occurrence: None)
  Receive Date: 20100409
  Receipt Date: 20100326
  Transmission Date: 20101027
  Serious: No
  Sender: FDA-Public Use
  Company Number: US-JNJFOC-20100308601

PATIENT
  Sex: Female
  Weight: 46.27 kg

DRUGS (3)
  1. DURAGESIC-100 [Suspect]
     Indication: FATIGUE
     Route: 062
     Dates: start: 20100101
  2. DURAGESIC-100 [Suspect]
     Indication: PAIN
     Route: 062
     Dates: start: 20100101
  3. CELEXA [Concomitant]
     Indication: FATIGUE
     Route: 048
     Dates: start: 19960101

REACTIONS (3)
  - APPLICATION SITE EROSION [None]
  - DRUG EFFECT DECREASED [None]
  - WRONG TECHNIQUE IN DRUG USAGE PROCESS [None]
